FAERS Safety Report 4389834-0 (Version None)
Quarter: 2004Q2

REPORT INFORMATION
  Report Type: 
  Country: None (occurrence: None)
  Receive Date: 20040630
  Receipt Date: 20040623
  Transmission Date: 20050107
  Serious: Yes (Death, Hospitalization)
  Sender: FDA-Public Use
  Company Number: 2004-02-1226

PATIENT
  Age: 23 Month
  Sex: Male

DRUGS (4)
  1. TEMODAL [Suspect]
     Indication: NEUROBLASTOMA
     Dosage: 100 MG QD ORAL
     Route: 048
     Dates: start: 20030820, end: 20030824
  2. ETOPOSIDE [Concomitant]
  3. RIVOTRIL [Concomitant]
  4. MORPHINE [Concomitant]

REACTIONS (6)
  - ANAEMIA [None]
  - C-REACTIVE PROTEIN INCREASED [None]
  - DISEASE PROGRESSION [None]
  - PSEUDOMONAS INFECTION [None]
  - PYREXIA [None]
  - THROMBOCYTOPENIA [None]
